FAERS Safety Report 6638597-3 (Version None)
Quarter: 2010Q1

REPORT INFORMATION
  Report Type: 
  Country: None (occurrence: None)
  Receive Date: 20100316
  Receipt Date: 20100316
  Transmission Date: 20100710
  Serious: No
  Sender: FDA-Public Use
  Company Number: None

PATIENT
  Age: 86 Year
  Sex: Female
  Weight: 72.1219 kg

DRUGS (2)
  1. LEVAQUIN [Suspect]
     Indication: BRONCHITIS
     Dates: start: 20100227, end: 20100302
  2. LEVAQUIN [Suspect]
     Indication: SINUSITIS
     Dates: start: 20100227, end: 20100302

REACTIONS (2)
  - ABASIA [None]
  - TENDON PAIN [None]
